FAERS Safety Report 7085374-8 (Version None)
Quarter: 2010Q4

REPORT INFORMATION
  Report Type: 
  Country: None (occurrence: None)
  Receive Date: 20101105
  Receipt Date: 20101025
  Transmission Date: 20110411
  Serious: Yes (Other)
  Sender: FDA-Public Use
  Company Number: PHEH2009US02559

PATIENT
  Sex: Male

DRUGS (2)
  1. AREDIA [Suspect]
     Dosage: UNK
  2. ZOMETA [Suspect]

REACTIONS (9)
  - ANHEDONIA [None]
  - ANXIETY [None]
  - DISABILITY [None]
  - GINGIVAL SWELLING [None]
  - INJURY [None]
  - OSTEONECROSIS OF JAW [None]
  - PAIN [None]
  - TOOTH DISORDER [None]
  - TOOTHACHE [None]
